FAERS Safety Report 7689313-8 (Version None)
Quarter: 2011Q3

REPORT INFORMATION
  Report Type: 
  Country: None (occurrence: None)
  Receive Date: 20110817
  Receipt Date: 20110718
  Transmission Date: 20111222
  Serious: No
  Sender: FDA-Public Use
  Company Number: US-BAYER-2011-056191

PATIENT
  Age: 44 Year
  Sex: Female

DRUGS (5)
  1. INTERFERON BETA-1B [Suspect]
     Indication: MULTIPLE SCLEROSIS
     Dosage: 4 MIU, QOD
     Route: 058
     Dates: start: 20110613
  2. ACETAMINOPHEN [Concomitant]
     Indication: PROPHYLAXIS
  3. INTERFERON BETA-1B [Suspect]
     Dosage: 4 MIU, QOD
     Route: 058
  4. IBUPROFEN [Concomitant]
     Indication: PROPHYLAXIS
  5. INTERFERON BETA-1B [Suspect]
     Dosage: 6 MIU, UNK
     Route: 058

REACTIONS (8)
  - FEELING ABNORMAL [None]
  - CHILLS [None]
  - INJECTION SITE ERYTHEMA [None]
  - INFLUENZA LIKE ILLNESS [None]
  - HYPERHIDROSIS [None]
  - PAIN [None]
  - INJECTION SITE PAIN [None]
  - FATIGUE [None]
